FAERS Safety Report 7342748-5 (Version None)
Quarter: 2011Q1

REPORT INFORMATION
  Report Type: 
  Country: None (occurrence: None)
  Receive Date: 20110301
  Receipt Date: 20110214
  Transmission Date: 20110831
  Serious: Yes (Other)
  Sender: FDA-Public Use
  Company Number: AUR-APL-2011-00570

PATIENT
  Sex: Female

DRUGS (2)
  1. LEVETIRACETAM [Suspect]
  2. TOPIRAMATE [Suspect]

REACTIONS (5)
  - STATUS EPILEPTICUS [None]
  - CONDITION AGGRAVATED [None]
  - CONVULSION [None]
  - ANTICONVULSANT DRUG LEVEL INCREASED [None]
  - GRAND MAL CONVULSION [None]
